FAERS Safety Report 23092074 (Version 1)
Quarter: 2023Q4

REPORT INFORMATION
  Report Type: Spontaneous
  Country: NL (occurrence: NL)
  Receive Date: 20231021
  Receipt Date: 20231021
  Transmission Date: 20240110
  Serious: Yes (Other)
  Sender: FDA-Public Use
  Company Number: NL-AMGEN-NLDSP2023184277

PATIENT
  Age: 31 Year
  Sex: Female

DRUGS (2)
  1. TRASTUZUMAB [Suspect]
     Active Substance: TRASTUZUMAB
     Indication: Breast cancer
     Dosage: UNK, QWK FOR (12 WEEKS) 14 3- WEEKLY
     Route: 065
  2. PACLITAXEL [Suspect]
     Active Substance: PACLITAXEL
     Indication: Breast cancer
     Dosage: UNK (FOR 12 WEEKS)
     Route: 065

REACTIONS (9)
  - Pancytopenia [Unknown]
  - Renal impairment [Unknown]
  - Osteosarcoma [Unknown]
  - Device related infection [Unknown]
  - Hypocalcaemia [Unknown]
  - Motor dysfunction [Unknown]
  - Hypoaesthesia oral [Unknown]
  - Vomiting [Unknown]
  - Nausea [Unknown]
